FAERS Safety Report 4940601-5 (Version None)
Quarter: 2006Q1

REPORT INFORMATION
  Report Type: 
  Country: None (occurrence: None)
  Receive Date: 20060126
  Receipt Date: 20051012
  Transmission Date: 20060701
  Serious: Yes (Other)
  Sender: FDA-Public Use
  Company Number: 2005BH002301

PATIENT
  Sex: Female

DRUGS (7)
  1. DIANEAL PD-2 W/ DEXTROSE 1.5% [Suspect]
     Indication: PERITONEAL DIALYSIS
     Dosage: 1.5 L;4X A DAY;IP
     Dates: start: 20030922
  2. COVERA-HS [Concomitant]
  3. COLACE [Concomitant]
  4. DARVOCET [Concomitant]
  5. BACTROBAN [Concomitant]
  6. POTASSIUM [Concomitant]
  7. PROMID [Concomitant]

REACTIONS (2)
  - ABDOMINAL PAIN [None]
  - NAUSEA [None]
